FAERS Safety Report 18757942 (Version 6)
Quarter: 2021Q4

REPORT INFORMATION
  Report Type: Report from Study
  Country: IN (occurrence: IN)
  Receive Date: 20210119
  Receipt Date: 20211027
  Transmission Date: 20220303
  Serious: Yes (Death, Life-Threatening, Hospitalization, Other)
  Sender: FDA-Public Use
  Company Number: NVSC2020IN344980

PATIENT
  Age: 9 Month
  Sex: Female
  Weight: 10.5 kg

DRUGS (12)
  1. ZOLGENSMA [Suspect]
     Active Substance: ONASEMNOGENE ABEPARVOVEC-XIOI
     Indication: Spinal muscular atrophy
     Dosage: 33 ML, ONCE/SINGLE (1.1X 10E14 VECTOR GENOMES/KG B.W) (DOSE OVER 1 HOUR)
     Route: 042
     Dates: start: 20201224
  2. ZOLGENSMA [Suspect]
     Active Substance: ONASEMNOGENE ABEPARVOVEC-XIOI
     Dosage: 5.5 ML
     Route: 042
  3. ZOLGENSMA [Suspect]
     Active Substance: ONASEMNOGENE ABEPARVOVEC-XIOI
     Dosage: 8.3 ML
     Route: 042
  4. PREDNISOLONE [Concomitant]
     Active Substance: PREDNISOLONE
     Indication: Prophylaxis
     Dosage: 1 MG/KG, QD
     Route: 065
     Dates: start: 20201223, end: 20210107
  5. PREDNISOLONE [Concomitant]
     Active Substance: PREDNISOLONE
     Dosage: 0.5 MG/KG
     Route: 048
     Dates: end: 20210120
  6. BUDESONIDE [Concomitant]
     Active Substance: BUDESONIDE
     Indication: Prophylaxis
     Dosage: UNK
     Route: 065
  7. ASTHALIN [Concomitant]
     Indication: Prophylaxis
     Dosage: UNK
     Route: 065
  8. CALCIUM [Concomitant]
     Active Substance: CALCIUM
     Indication: Product used for unknown indication
     Route: 065
  9. VITAMINS [Concomitant]
     Active Substance: VITAMINS
     Indication: Product used for unknown indication
     Route: 065
  10. HYDROCORTISONE [Concomitant]
     Active Substance: HYDROCORTISONE
     Indication: Product used for unknown indication
     Dosage: 100 MG/M2
     Route: 065
     Dates: start: 20201227
  11. LANZOL [Concomitant]
     Indication: Gastritis prophylaxis
     Dosage: 1 MG/KG, QD
     Route: 065
     Dates: start: 20201202
  12. LANZOL [Concomitant]
     Dosage: 1 MG/KG, QD
     Route: 065
     Dates: start: 20201223, end: 20210110

REACTIONS (29)
  - Lower respiratory tract infection [Fatal]
  - Respiratory failure [Fatal]
  - Hypoxia [Fatal]
  - Respiratory distress [Fatal]
  - Seizure [Fatal]
  - Pneumothorax [Fatal]
  - Cardio-respiratory arrest [Fatal]
  - Oxygen saturation decreased [Fatal]
  - Depressed level of consciousness [Fatal]
  - Myocarditis [Recovered/Resolved]
  - Pneumonia aspiration [Unknown]
  - Bulbar palsy [Unknown]
  - Respiratory disorder [Unknown]
  - Tachycardia [Recovered/Resolved]
  - Pyrexia [Unknown]
  - Fungal sepsis [Recovering/Resolving]
  - Respiratory muscle weakness [Unknown]
  - Apnoea [Unknown]
  - Pseudomonas infection [Recovered/Resolved]
  - Klebsiella infection [Recovered/Resolved]
  - Respiratory distress [Unknown]
  - Respiratory distress [Recovered/Resolved]
  - Lower respiratory tract infection [Recovered/Resolved]
  - Urinary tract infection [Recovered/Resolved]
  - Lung infiltration [Unknown]
  - Hypertension [Unknown]
  - Staphylococcus test positive [Unknown]
  - Aspergillus test positive [Unknown]
  - Transaminases increased [Recovered/Resolved]

NARRATIVE: CASE EVENT DATE: 20201227
